FAERS Safety Report 7296512-6 (Version None)
Quarter: 2011Q1

REPORT INFORMATION
  Report Type: 
  Country: None (occurrence: None)
  Receive Date: 20110216
  Receipt Date: 20110203
  Transmission Date: 20110831
  Serious: Yes (Other)
  Sender: FDA-Public Use
  Company Number: PHHY2008US37179

PATIENT
  Sex: Male
  Weight: 83 kg

DRUGS (8)
  1. ACETAMINOPHEN [Concomitant]
  2. ACETYLSALICYLIC ACID [Concomitant]
     Dosage: 81 MG, DAILY
  3. PRILOSEC [Concomitant]
     Indication: GASTROOESOPHAGEAL REFLUX DISEASE
     Dosage: 20 MG, DAILY
     Route: 048
  4. ANDROGEL [Concomitant]
     Indication: HYPOGONADISM MALE
     Route: 062
  5. EXJADE [Suspect]
     Dosage: 750 MG, BID
     Route: 048
  6. EXJADE [Suspect]
     Indication: MYELODYSPLASTIC SYNDROME
     Dosage: 750 MG, DAILY
     Route: 048
     Dates: start: 20080908, end: 20101201
  7. PROCRIT [Concomitant]
     Indication: MYELODYSPLASTIC SYNDROME
     Dosage: 60 K QOW
     Dates: end: 20101201
  8. CELEBREX [Concomitant]
     Indication: PAIN
     Dosage: 200 MG, PRN

REACTIONS (9)
  - ARTHRALGIA [None]
  - ABDOMINAL PAIN [None]
  - MYALGIA [None]
  - DYSPNOEA [None]
  - CHEST PAIN [None]
  - HOT FLUSH [None]
  - LIVER DISORDER [None]
  - RENAL DISORDER [None]
  - FATIGUE [None]
